FAERS Safety Report 8298041-X (Version None)
Quarter: 2012Q2

REPORT INFORMATION
  Report Type: 
  Country: None (occurrence: None)
  Receive Date: 20120419
  Receipt Date: 20120404
  Transmission Date: 20120825
  Serious: Yes (Hospitalization)
  Sender: FDA-Public Use
  Company Number: US-PAR PHARMACEUTICAL, INC-2012SCPR004308

PATIENT

DRUGS (4)
  1. SEROQUEL [Concomitant]
     Indication: PRODUCT USED FOR UNKNOWN INDICATION
     Dosage: 200 MG, BEDTIME
     Route: 048
  2. LUBIPROSTONE [Suspect]
     Indication: CONSTIPATION
     Dosage: 1 CAPSULE, TWICE A DAY; ONCE IN THE MORNING AND ONCE IN THE EVENING
     Route: 048
  3. REMERON [Concomitant]
     Indication: PRODUCT USED FOR UNKNOWN INDICATION
     Dosage: 15 MG A DAY
     Route: 065
  4. LISINOPRIL [Concomitant]
     Indication: PRODUCT USED FOR UNKNOWN INDICATION
     Dosage: 40 MG, TWICE DAILY
     Route: 065

REACTIONS (7)
  - MASTOID EFFUSION [None]
  - FALL [None]
  - GASTROOESOPHAGEAL REFLUX DISEASE [None]
  - ALCOHOL POISONING [None]
  - SINUS TACHYCARDIA [None]
  - DELIRIUM TREMENS [None]
  - GASTROINTESTINAL HAEMORRHAGE [None]
